FAERS Safety Report 11106271 (Version 1)
Quarter: 2015Q2

REPORT INFORMATION
  Report Type: Report from Study
  Country: US (occurrence: US)
  Receive Date: 20150512
  Receipt Date: 20150512
  Transmission Date: 20150821
  Serious: Yes (Other)
  Sender: FDA-Public Use
  Company Number: US-BAYER-2014-145683

PATIENT
  Age: 83 Year
  Sex: Male
  Weight: 76.19 kg

DRUGS (16)
  1. TRIAMCINOLONE [TRIAMCINOLONE ACETONIDE] [Concomitant]
     Dosage: DAILY DOSE .1 %
  2. MERCAPTOPURINE. [Concomitant]
     Active Substance: MERCAPTOPURINE
     Dosage: DAILY DOSE 50 MG
  3. MESALAZINE [Concomitant]
     Active Substance: MESALAMINE
     Dosage: DAILY DOSE 400 MG
  4. CIPROFLOXACIN. [Concomitant]
     Active Substance: CIPROFLOXACIN
  5. CEPHALEXIN. [Concomitant]
     Active Substance: CEPHALEXIN
     Dosage: DAILY DOSE 500 MG
  6. NEXAVAR [Suspect]
     Active Substance: SORAFENIB
     Indication: HEPATOCELLULAR CARCINOMA
     Dosage: 400 MG, BID
     Route: 048
     Dates: start: 20140925, end: 20141129
  7. COLLAGENASE SANTYL [Concomitant]
     Active Substance: COLLAGENASE CLOSTRIDIUM HISTOLYTICUM
     Dosage: DAILY DOSE 250 U
  8. NEXAVAR [Suspect]
     Active Substance: SORAFENIB
     Indication: HEPATOCELLULAR CARCINOMA
     Dosage: 400 MG IN MORNING AND 200 MG IN EVENING
     Route: 048
     Dates: start: 20140923
  9. SPIRONOLACTONE. [Concomitant]
     Active Substance: SPIRONOLACTONE
     Dosage: DAILY DOSE 25 MG
  10. GLYBURIDE. [Concomitant]
     Active Substance: GLYBURIDE
     Dosage: DAILY DOSE 2.5 MG
  11. PRILOSEC [Concomitant]
     Active Substance: OMEPRAZOLE MAGNESIUM
     Dosage: DAILY DOSE 20 MG
  12. PREDNISONE. [Concomitant]
     Active Substance: PREDNISONE
     Dosage: DAILY DOSE 10 MG
  13. FUROSEMIDE. [Concomitant]
     Active Substance: FUROSEMIDE
     Dosage: DAILY DOSE 80 MG
  14. MUPIROCIN. [Concomitant]
     Active Substance: MUPIROCIN
  15. METRONIDAZOLE. [Concomitant]
     Active Substance: METRONIDAZOLE
  16. MEGESTROL [Concomitant]
     Active Substance: MEGESTROL

REACTIONS (5)
  - Weight decreased [None]
  - Weight fluctuation [Recovering/Resolving]
  - Oedema peripheral [None]
  - Adverse drug reaction [Unknown]
  - Diarrhoea [Unknown]

NARRATIVE: CASE EVENT DATE: 20141002
